FAERS Safety Report 15631452 (Version 1)
Quarter: 2018Q4

REPORT INFORMATION
  Report Type: Spontaneous
  Country: US (occurrence: US)
  Receive Date: 20181119
  Receipt Date: 20181119
  Transmission Date: 20190205
  Serious: Yes (Other)
  Sender: FDA-Public Use
  Company Number: US-APOTEX-2018AP024958

PATIENT
  Age: 57 Year
  Sex: Male

DRUGS (14)
  1. TOPIRAMATE. [Suspect]
     Active Substance: TOPIRAMATE
     Indication: MYOFASCIAL PAIN SYNDROME
  2. DICLOFENAC [Suspect]
     Active Substance: DICLOFENAC
     Indication: TEMPOROMANDIBULAR JOINT SYNDROME
     Dosage: 50 MG, BID
     Route: 065
  3. NORTRIPTYLINE [Suspect]
     Active Substance: NORTRIPTYLINE
     Indication: TEMPOROMANDIBULAR JOINT SYNDROME
     Dosage: 25 MG, Q.H.S.
     Route: 065
  4. TOPIRAMATE. [Suspect]
     Active Substance: TOPIRAMATE
     Indication: TEMPOROMANDIBULAR JOINT SYNDROME
     Dosage: 80 MG, BID
     Route: 065
  5. CARBAMAZEPINE. [Suspect]
     Active Substance: CARBAMAZEPINE
     Indication: MYOFASCIAL PAIN SYNDROME
  6. METHOCARBAMOL. [Suspect]
     Active Substance: METHOCARBAMOL
     Indication: TEMPOROMANDIBULAR JOINT SYNDROME
     Dosage: 750 MG, TID
     Route: 065
  7. DICLOFENAC [Suspect]
     Active Substance: DICLOFENAC
     Indication: MYOFASCIAL PAIN SYNDROME
  8. METHOCARBAMOL. [Suspect]
     Active Substance: METHOCARBAMOL
     Indication: MYOFASCIAL PAIN SYNDROME
  9. DESIPRAMINE [Concomitant]
     Active Substance: DESIPRAMINE
     Indication: TEMPOROMANDIBULAR JOINT SYNDROME
     Dosage: 10 MG, Q.H.S.
     Route: 065
  10. DESIPRAMINE [Concomitant]
     Active Substance: DESIPRAMINE
     Indication: MYOFASCIAL PAIN SYNDROME
  11. GABAPENTIN. [Suspect]
     Active Substance: GABAPENTIN
     Indication: TEMPOROMANDIBULAR JOINT SYNDROME
     Dosage: 300 MG, TID
     Route: 065
  12. GABAPENTIN. [Suspect]
     Active Substance: GABAPENTIN
     Indication: MYOFASCIAL PAIN SYNDROME
  13. CARBAMAZEPINE. [Suspect]
     Active Substance: CARBAMAZEPINE
     Indication: TEMPOROMANDIBULAR JOINT SYNDROME
     Dosage: UNK, UNKNOWN
     Route: 065
  14. NORTRIPTYLINE [Suspect]
     Active Substance: NORTRIPTYLINE
     Indication: MYOFASCIAL PAIN SYNDROME

REACTIONS (3)
  - Drug effect incomplete [Unknown]
  - Sensory disturbance [Unknown]
  - Abnormal dreams [Unknown]
